FAERS Safety Report 8590204 (Version 2)
Quarter: 2013Q3

REPORT INFORMATION
  Report Type: Report from Study
  Country: US (occurrence: US)
  Receive Date: 20120601
  Receipt Date: 20130925
  Transmission Date: 20140515
  Serious: Yes (Other)
  Sender: FDA-Public Use
  Company Number: US-B.I. PHARMACEUTICALS,INC./RIDGEFIELD-2012-EU-02884GD

PATIENT
  Age: 68 Year
  Sex: Male

DRUGS (6)
  1. DABIGATRAN [Suspect]
     Indication: ANTICOAGULANT THERAPY
     Dosage: 300 MG
     Route: 048
  2. DABIGATRAN [Suspect]
     Indication: ATRIAL FIBRILLATION
     Dosage: 300 MG
     Route: 048
  3. HEPARIN [Concomitant]
     Indication: ANTICOAGULANT THERAPY
     Dosage: ADJUSTED TO AN ACT RANGE OF 295-361S
     Route: 042
  4. PROTAMINE [Concomitant]
     Indication: HEPARIN NEUTRALISATION THERAPY
  5. LOW MOLECULAR WEIGHT HEPARIN [Concomitant]
     Indication: ANTICOAGULANT THERAPY
  6. LOW MOLECULAR WEIGHT HEPARIN [Concomitant]
     Dosage: 0.5 MG/KG AFTER SHEAT PULL

REACTIONS (5)
  - Cerebrovascular accident [Unknown]
  - Cerebellar infarction [Unknown]
  - Balance disorder [Unknown]
  - Diplopia [Unknown]
  - Dysarthria [Unknown]
